FAERS Safety Report 19614733 (Version 2)
Quarter: 2021Q3

REPORT INFORMATION
  Report Type: Spontaneous
  Country: US (occurrence: US)
  Receive Date: 20210727
  Receipt Date: 20210728
  Transmission Date: 20211014
  Serious: No
  Sender: FDA-Public Use
  Company Number: US-PFIZER INC-2021582683

PATIENT
  Age: 46 Year
  Sex: Male

DRUGS (4)
  1. LYRICA CR [Suspect]
     Active Substance: PREGABALIN
     Dosage: 165 MG, 1X/DAY
  2. LYRICA CR [Suspect]
     Active Substance: PREGABALIN
     Dosage: 82.5 MG, 1X/DAY
  3. LYRICA CR [Suspect]
     Active Substance: PREGABALIN
     Dosage: 333 MG
  4. LYRICA CR [Suspect]
     Active Substance: PREGABALIN
     Dosage: 330 MG, 1X/DAY

REACTIONS (2)
  - Off label use [Unknown]
  - Pain [Unknown]
